FAERS Safety Report 20460872 (Version 1)
Quarter: 2022Q1

REPORT INFORMATION
  Report Type: Spontaneous
  Country: US (occurrence: US)
  Receive Date: 20220211
  Receipt Date: 20220211
  Transmission Date: 20220424
  Serious: No
  Sender: FDA-Public Use
  Company Number: US-SA-SAC20220205000132

PATIENT
  Age: 30 Year
  Sex: Male

DRUGS (3)
  1. DUPIXENT [Suspect]
     Active Substance: DUPILUMAB
     Indication: Dermatitis atopic
     Dosage: 300MG/2ML
     Route: 058
     Dates: start: 20211231
  2. ACID REDUCER [RANITIDINE HYDROCHLORIDE] [Concomitant]
  3. ALLERGY RELIEF [CHLORPHENAMINE MALEATE] [Concomitant]

REACTIONS (1)
  - Rash [Unknown]
